FAERS Safety Report 7516141-6 (Version None)
Quarter: 2011Q2

REPORT INFORMATION
  Report Type: 
  Country: None (occurrence: None)
  Receive Date: 20110601
  Receipt Date: 20110526
  Transmission Date: 20111010
  Serious: Yes (Death, Hospitalization)
  Sender: FDA-Public Use
  Company Number: CO-ROCHE-779322

PATIENT
  Sex: Female

DRUGS (1)
  1. XELODA [Suspect]
     Indication: GASTRIC CANCER
     Dosage: THERAPY WAS STOPPED SINCE PATIET DIED ON 25 MAY 2011
     Route: 048
     Dates: start: 20100505

REACTIONS (1)
  - APPENDICITIS [None]
